FAERS Safety Report 6545689-6 (Version None)
Quarter: 2010Q1

REPORT INFORMATION
  Report Type: 
  Country: None (occurrence: None)
  Receive Date: 20100121
  Receipt Date: 20100112
  Transmission Date: 20100710
  Serious: Yes (Hospitalization, Other)
  Sender: FDA-Public Use
  Company Number: PHHY2010CA00534

PATIENT
  Sex: Female

DRUGS (3)
  1. SANDOSTATIN LAR [Suspect]
     Indication: SARCOMA UTERUS
     Dosage: 20 MG, QMO
     Route: 030
     Dates: start: 20090929
  2. SANDOSTATIN LAR [Suspect]
     Dosage: 30 MG EVERY 4 WEEKS
     Route: 030
  3. SANDOSTATIN [Suspect]
     Dosage: 200 UG, TID
     Route: 058

REACTIONS (6)
  - ASCITES [None]
  - DYSPNOEA [None]
  - FATIGUE [None]
  - GENERAL PHYSICAL HEALTH DETERIORATION [None]
  - PALLIATIVE CARE [None]
  - PALLOR [None]
